FAERS Safety Report 10996140 (Version 1)
Quarter: 2015Q2

REPORT INFORMATION
  Report Type: Spontaneous
  Country: BR (occurrence: BR)
  Receive Date: 20150407
  Receipt Date: 20150407
  Transmission Date: 20150821
  Serious: Yes (Hospitalization)
  Sender: FDA-Public Use
  Company Number: BR-009507513-1504BRA001982

PATIENT
  Age: 38 Year
  Sex: Female
  Weight: 60 kg

DRUGS (2)
  1. NUVARING [Suspect]
     Active Substance: ETHINYL ESTRADIOL\ETONOGESTREL
     Indication: CONTRACEPTION
     Dosage: 3 WEEKS OF USE AND 1 WEEK OF PAUSE
     Route: 067
     Dates: end: 201409
  2. NUVARING [Suspect]
     Active Substance: ETHINYL ESTRADIOL\ETONOGESTREL
     Dosage: 3 WEEKS OF USE AND 1 WEEK OF PAUSE
     Route: 067
     Dates: start: 20150306, end: 20150327

REACTIONS (2)
  - Menstruation irregular [Not Recovered/Not Resolved]
  - Obesity surgery [Recovered/Resolved]

NARRATIVE: CASE EVENT DATE: 2012
